FAERS Safety Report 19851718 (Version 1)
Quarter: 2021Q3

REPORT INFORMATION
  Report Type: Spontaneous
  Country: NL (occurrence: NL)
  Receive Date: 20210917
  Receipt Date: 20210917
  Transmission Date: 20211014
  Serious: Yes (Other)
  Sender: FDA-Public Use
  Company Number: NL-ROCHE-2892184

PATIENT
  Age: 48 Year
  Sex: Female

DRUGS (1)
  1. OCREVUS [Suspect]
     Active Substance: OCRELIZUMAB
     Indication: MULTIPLE SCLEROSIS
     Route: 065
     Dates: start: 20190120

REACTIONS (8)
  - Hot flush [Unknown]
  - Middle insomnia [Unknown]
  - Contusion [Unknown]
  - Multiple sclerosis [Unknown]
  - Feeling abnormal [Unknown]
  - Arthralgia [Unknown]
  - Pain in extremity [Unknown]
  - Fall [Unknown]
